FAERS Safety Report 20883729 (Version 3)
Quarter: 2022Q3

REPORT INFORMATION
  Report Type: Spontaneous
  Country: US (occurrence: US)
  Receive Date: 20220527
  Receipt Date: 20220719
  Transmission Date: 20221027
  Serious: No
  Sender: FDA-Public Use
  Company Number: US-PFIZER INC-202200767345

PATIENT
  Age: 69 Year
  Sex: Female

DRUGS (2)
  1. INLYTA [Suspect]
     Active Substance: AXITINIB
     Dosage: 5 MG, 2X/DAY
     Dates: start: 20220410, end: 2022
  2. INLYTA [Suspect]
     Active Substance: AXITINIB
     Dosage: 5 MG, 1X/DAY
     Dates: start: 20220712

REACTIONS (5)
  - Fatigue [Unknown]
  - Nausea [Unknown]
  - Constipation [Unknown]
  - Palmar-plantar erythrodysaesthesia syndrome [Unknown]
  - Off label use [Unknown]

NARRATIVE: CASE EVENT DATE: 20220401
